FAERS Safety Report 9729947 (Version 1)
Quarter: 2013Q4

REPORT INFORMATION
  Report Type: Spontaneous
  Country: BE (occurrence: None)
  Receive Date: 20131203
  Receipt Date: 20131203
  Transmission Date: 20140711
  Serious: Yes (Other)
  Sender: FDA-Public Use
  Company Number: 2013P1021454

PATIENT
  Age: 29 Year
  Sex: Female

DRUGS (2)
  1. DIAZEPAM [Suspect]
  2. KETAMINE [Suspect]

REACTIONS (4)
  - Loss of consciousness [None]
  - Injection site pain [None]
  - Victim of sexual abuse [None]
  - Vomiting [None]
